FAERS Safety Report 11336972 (Version 2)
Quarter: 2015Q3

REPORT INFORMATION
  Report Type: Report from Study
  Country: IT (occurrence: IT)
  Receive Date: 20150804
  Receipt Date: 20150805
  Transmission Date: 20151125
  Serious: Yes (Death, Other)
  Sender: FDA-Public Use
  Company Number: IT-ABBVIE-15P-083-1437218-00

PATIENT
  Age: 80 Year
  Sex: Male
  Weight: 68 kg

DRUGS (1)
  1. DUODOPA [Suspect]
     Active Substance: CARBIDOPA\LEVODOPA
     Indication: PARKINSON^S DISEASE
     Dosage: MD 10+3, CR4.8, ED 5.2
     Route: 050
     Dates: start: 20110506, end: 20150728

REACTIONS (2)
  - Decubitus ulcer [Fatal]
  - Death [Fatal]

NARRATIVE: CASE EVENT DATE: 20150728
